FAERS Safety Report 9016616 (Version 3)
Quarter: 2013Q1

REPORT INFORMATION
  Report Type: Spontaneous
  Country: US (occurrence: US)
  Receive Date: 20130117
  Receipt Date: 20130319
  Transmission Date: 20140127
  Serious: Yes (Other)
  Sender: FDA-Public Use
  Company Number: US-BIOGENIDEC-2013BI003728

PATIENT
  Age: 47 Year
  Sex: Male

DRUGS (4)
  1. TYSABRI [Suspect]
     Indication: CROHN^S DISEASE
     Route: 042
     Dates: start: 20121211
  2. MAXALT [Concomitant]
  3. ULTRASE [Concomitant]
  4. PRILOSEC [Concomitant]

REACTIONS (5)
  - Skin lesion [Unknown]
  - Skin papilloma [Unknown]
  - Basal cell carcinoma [Recovered/Resolved]
  - Haemorrhage [Not Recovered/Not Resolved]
  - Malaise [Not Recovered/Not Resolved]
